FAERS Safety Report 6126537-5 (Version None)
Quarter: 2009Q1

REPORT INFORMATION
  Report Type: 
  Country: None (occurrence: None)
  Receive Date: 20090320
  Receipt Date: 20090312
  Transmission Date: 20090719
  Serious: Yes (Hospitalization)
  Sender: FDA-Public Use
  Company Number: FR-PFIZER INC-2009183327

PATIENT

DRUGS (8)
  1. TAHOR [Suspect]
     Dosage: 40 MG, 1X/DAY
     Route: 048
     Dates: start: 20060401, end: 20080901
  2. TAHOR [Suspect]
     Dosage: 10 MG, 1X/DAY
     Dates: start: 20050501, end: 20051001
  3. TAHOR [Suspect]
     Dosage: 20 MG, 1X/DAY
     Dates: start: 20051001, end: 20060401
  4. KARDEGIC [Concomitant]
     Dosage: 75 MG, 1X/DAY
  5. TENORMIN [Concomitant]
     Dosage: 50 MG, 2X/DAY
  6. PIASCLEDINE [Concomitant]
     Dosage: 300 MG, 1X/DAY
  7. ZOLPIDEM TARTRATE [Concomitant]
  8. PARIET [Concomitant]
     Dosage: 20 MG, UNK

REACTIONS (2)
  - ALANINE AMINOTRANSFERASE INCREASED [None]
  - CYTOLYTIC HEPATITIS [None]
